FAERS Safety Report 15831590 (Version 2)
Quarter: 2019Q1

REPORT INFORMATION
  Report Type: Spontaneous
  Country: IT (occurrence: IT)
  Receive Date: 20190116
  Receipt Date: 20190125
  Transmission Date: 20190417
  Serious: Yes (Other)
  Sender: FDA-Public Use
  Company Number: IT-UCBSA-2019001273

PATIENT
  Sex: Male

DRUGS (20)
  1. LEVETIRACETAM. [Suspect]
     Active Substance: LEVETIRACETAM
     Dosage: UPTO 100 MG/KG/DAY
  2. LEVETIRACETAM. [Suspect]
     Active Substance: LEVETIRACETAM
     Dosage: 45 MG/KG, DAILY
  3. QUINIDINE [Suspect]
     Active Substance: QUINIDINE
     Dosage: INCREASED FROM 50 TO 70 MG/KG IN 2 WEEKS
     Route: 065
  4. PHENOBARBITAL. [Interacting]
     Active Substance: PHENOBARBITAL
     Indication: PARTIAL SEIZURES
     Dosage: INCREASED TO 8 MG/KG/DAY
     Route: 065
  5. PYRIDOXINE [Concomitant]
     Active Substance: PYRIDOXINE
     Indication: PARTIAL SEIZURES
     Dosage: 30 MG/KG/DAY
     Route: 048
  6. LEVETIRACETAM. [Suspect]
     Active Substance: LEVETIRACETAM
     Indication: PARTIAL SEIZURES
     Dosage: 60 MG/KG, DAILY
  7. QUINIDINE [Suspect]
     Active Substance: QUINIDINE
     Indication: PARTIAL SEIZURES
     Dosage: INCREASED EVERY 2 TO 4 DAYS OF 4 TO 5 MG/KG (TARGET 60 MG/KG)
  8. QUINIDINE [Suspect]
     Active Substance: QUINIDINE
     Dosage: 50 MG/KG DAILY
     Route: 065
  9. QUINIDINE [Suspect]
     Active Substance: QUINIDINE
     Dosage: TITRATED UP TO A TARGET DOSE OF 50 MG/KG/DAY
     Route: 065
  10. QUINIDINE [Suspect]
     Active Substance: QUINIDINE
     Dosage: WAS REDUCED AGAIN TO 35MG/KG/DAY
     Route: 065
  11. CLONAZEPAM. [Concomitant]
     Active Substance: CLONAZEPAM
     Indication: PARTIAL SEIZURES
     Dosage: 0.2 MG/KG,
     Route: 048
  12. MIDAZOLAM [Concomitant]
     Active Substance: MIDAZOLAM HYDROCHLORIDE
     Indication: PARTIAL SEIZURES
     Dosage: 0.2 MG/KG, HOURLY
  13. PHENOBARBITAL. [Interacting]
     Active Substance: PHENOBARBITAL
     Dosage: 5 MG/KG/DAY
     Route: 065
  14. PHENOBARBITAL. [Interacting]
     Active Substance: PHENOBARBITAL
     Dosage: LATER REDUCED TO 3 MG/KG
     Route: 065
  15. POTASSIUM BROMIDE [Concomitant]
     Active Substance: POTASSIUM BROMIDE
     Indication: PARTIAL SEIZURES
     Dosage: UP TO 45 MG/KG/DAY
  16. TOPIRAMATE. [Concomitant]
     Active Substance: TOPIRAMATE
     Indication: PARTIAL SEIZURES
     Dosage: 5 MG/KG/DAY
  17. CARBAMAZEPINE. [Concomitant]
     Active Substance: CARBAMAZEPINE
     Indication: PARTIAL SEIZURES
     Dosage: UNKNOWN DOSE
  18. QUINIDINE [Suspect]
     Active Substance: QUINIDINE
     Dosage: 2 MG/KG, 4X/DAY (QID)
  19. QUINIDINE [Suspect]
     Active Substance: QUINIDINE
     Dosage: AFTER THE GRADUAL TITRATION, OBSEREVED INCREASED QT-INTERVAL
     Route: 065
  20. QUINIDINE [Suspect]
     Active Substance: QUINIDINE
     Dosage: DOSE WAS INCREASED TO 45 MG/KG
     Route: 065

REACTIONS (7)
  - Electrocardiogram QT prolonged [Recovered/Resolved]
  - Drug interaction [Recovered/Resolved]
  - Atrioventricular block [Unknown]
  - Seizure [Recovering/Resolving]
  - Multiple-drug resistance [Unknown]
  - Status epilepticus [Unknown]
  - Drug level decreased [Recovered/Resolved]
